FAERS Safety Report 5493078-8 (Version None)
Quarter: 2007Q4

REPORT INFORMATION
  Report Type: 
  Country: None (occurrence: None)
  Receive Date: 20071019
  Receipt Date: 20071012
  Transmission Date: 20080405
  Serious: Yes (Death, Life-Threatening, Hospitalization, Other)
  Sender: FDA-Public Use
  Company Number: TPA2007A01170

PATIENT
  Age: 79 Year
  Sex: Male

DRUGS (18)
  1. ACTOS [Suspect]
     Indication: DIABETES MELLITUS
     Dosage: 30MG, 1 IN 1 D, PER ORAL
     Route: 048
     Dates: start: 20060914, end: 20070101
  2. UNKNOWN (INSULIN (INSULIN) (- INJECTION) [Concomitant]
  3. GLIPIZIDE ER (GLIPIZIDE) [Concomitant]
  4. FUROSEMIDE [Concomitant]
  5. LOTREL [Concomitant]
  6. NITRO-DUR [Concomitant]
  7. AZITHROMYCIN [Concomitant]
  8. NITROQUICK (GLYCERYL TRINITRATE) [Concomitant]
  9. CLOPIDOGREL BISU (CLOPIDOGREL SULFATE) [Concomitant]
  10. NOVOLIN R [Concomitant]
  11. LEXAPRO [Concomitant]
  12. LOVENOX [Concomitant]
  13. LONOX (ATROPINE SULFATE, DIPHENOXYLATE HYDROCHLORIDE) [Concomitant]
  14. LANTUS [Concomitant]
  15. MORPHINE SULFATE [Concomitant]
  16. LASIX [Concomitant]
  17. GLUCOTROL XL [Concomitant]
  18. PLAVIX [Concomitant]

REACTIONS (4)
  - ARTERIOSCLEROSIS [None]
  - CARDIAC FAILURE CONGESTIVE [None]
  - CORONARY ARTERY DISEASE [None]
  - PNEUMONIA ASPIRATION [None]
